FAERS Safety Report 4526948-5 (Version None)
Quarter: 2004Q4

REPORT INFORMATION
  Report Type: 
  Country: None (occurrence: None)
  Receive Date: 20041207
  Receipt Date: 20041122
  Transmission Date: 20050328
  Serious: Yes (Other)
  Sender: FDA-Public Use
  Company Number: 200410392BBE

PATIENT
  Sex: Female

DRUGS (1)
  1. GAMUNEX [Suspect]
     Indication: DERMATOMYOSITIS
     Dosage: 70 G, QD, INTRAVENOUS
     Route: 042
     Dates: start: 20040701

REACTIONS (1)
  - MENINGITIS ASEPTIC [None]
